FAERS Safety Report 9559431 (Version 1)
Quarter: 2013Q3

REPORT INFORMATION
  Report Type: Spontaneous
  Country: US (occurrence: None)
  Receive Date: 20130909
  Receipt Date: 20130909
  Transmission Date: 20140515
  Serious: Yes (Hospitalization)
  Sender: FDA-Public Use
  Company Number: 373642

PATIENT
  Age: 63 Year
  Sex: Male
  Weight: 95.5 kg

DRUGS (9)
  1. VICTOZA (LIRAGLUTIDE) SOLUTION FOR INJECTION, 6MG/ML [Suspect]
     Indication: TYPE 2 DIABETES MELLITUS
     Route: 058
     Dates: start: 20100317
  2. LANTUS (INSULIN GLARGINE) [Concomitant]
  3. HUMALOG (INSULIN LISPRO) [Concomitant]
  4. LIPITOR (ATORVASTATIN CALCIUM) [Concomitant]
  5. AVALIDE (HYDROCHLOROTHIAZIDE, IRBESARTAN) [Concomitant]
  6. METFORMIN [Concomitant]
  7. WELLBUTRIN (BUPROPION HYDROCHLORIDE) [Concomitant]
  8. FISH OIL [Concomitant]
  9. TOPROL (METOPROLOL SUCCINATE) [Concomitant]

REACTIONS (1)
  - Pancreatitis acute [None]
